FAERS Safety Report 22035238 (Version 7)
Quarter: 2023Q2

REPORT INFORMATION
  Report Type: Spontaneous
  Country: US (occurrence: US)
  Receive Date: 20230224
  Receipt Date: 20230524
  Transmission Date: 20230721
  Serious: Yes (Hospitalization, Other)
  Sender: FDA-Public Use
  Company Number: US-PFIZER INC-202300079703

PATIENT
  Age: 61 Year
  Sex: Female
  Weight: 78.458 kg

DRUGS (4)
  1. RETACRIT [Suspect]
     Active Substance: EPOETIN ALFA-EPBX
     Indication: Red blood cell count decreased
     Dosage: UNK, WEEKLY (40000)
     Dates: start: 20210801
  2. LYNPARZA [Concomitant]
     Active Substance: OLAPARIB
     Dosage: UNK
  3. METOPROLOL [Concomitant]
     Active Substance: METOPROLOL
     Dosage: UNK
  4. PLAVIX [Concomitant]
     Active Substance: CLOPIDOGREL BISULFATE
     Dosage: UNK

REACTIONS (5)
  - Haemoglobin decreased [Recovered/Resolved]
  - Therapeutic product effect incomplete [Unknown]
  - Tinnitus [Unknown]
  - Palpitations [Unknown]
  - Dyspnoea [Not Recovered/Not Resolved]

NARRATIVE: CASE EVENT DATE: 20210801
